FAERS Safety Report 4692006-2 (Version None)
Quarter: 2005Q2

REPORT INFORMATION
  Report Type: 
  Country: None (occurrence: None)
  Receive Date: 20050616
  Receipt Date: 20050616
  Transmission Date: 20051028
  Serious: No
  Sender: FDA-Public Use
  Company Number: None

PATIENT
  Sex: Male
  Weight: 74 kg

DRUGS (12)
  1. ZOCOR [Suspect]
     Indication: HYPERLIPIDAEMIA
     Dosage: 80MG   HS   ORAL
     Route: 048
     Dates: start: 20050512, end: 20050615
  2. PRILOSEC [Concomitant]
  3. QUININE SULFATE [Concomitant]
  4. ATENOLOL [Concomitant]
  5. ACYCLOVIR [Concomitant]
  6. MIDRIN [Concomitant]
  7. PRED FORTE [Concomitant]
  8. CLEOCIN [Concomitant]
  9. TRIFLURIDINE [Concomitant]
  10. ISOSORBIDE DINITRATE [Concomitant]
  11. PLENDIL [Concomitant]
  12. LISINOPRIL [Concomitant]

REACTIONS (2)
  - ARTHRALGIA [None]
  - MYALGIA [None]
